FAERS Safety Report 9175952 (Version 1)
Quarter: 2013Q1

REPORT INFORMATION
  Report Type: Spontaneous
  Country: CN (occurrence: CN)
  Receive Date: 20130320
  Receipt Date: 20130320
  Transmission Date: 20140127
  Serious: Yes (Hospitalization)
  Sender: FDA-Public Use
  Company Number: CN-B.I. PHARMACEUTICALS,INC./RIDGEFIELD-2013-BI-07296CS

PATIENT
  Age: 52 Year
  Sex: Male

DRUGS (4)
  1. SIFROL [Suspect]
  2. MADOPAR [Suspect]
  3. FLUPENTIXOL\MELITRACEN [Suspect]
  4. ZOLOFT [Suspect]

REACTIONS (2)
  - Drug ineffective [Not Recovered/Not Resolved]
  - Condition aggravated [Not Recovered/Not Resolved]
